FAERS Safety Report 4652199-X (Version None)
Quarter: 2005Q2

REPORT INFORMATION
  Report Type: 
  Country: None (occurrence: None)
  Receive Date: 20050502
  Receipt Date: 20050419
  Transmission Date: 20051028
  Serious: Yes (Other)
  Sender: FDA-Public Use
  Company Number: 2005065412

PATIENT
  Age: 49 Year
  Sex: Female

DRUGS (2)
  1. CELEBREX [Suspect]
     Indication: MYALGIA
     Dosage: 200 MG (200 MG, 1 IN 1 D) ORAL
     Route: 048
     Dates: start: 20030901
  2. ROFECOXIB [Suspect]
     Indication: MYALGIA
     Dosage: 25 MG (25 MG, 1 IN 1 D) ORAL
     Route: 048
     Dates: start: 20030813

REACTIONS (11)
  - ALCOHOL INTOLERANCE [None]
  - DYSPNOEA [None]
  - ERYTHEMA [None]
  - FEELING HOT [None]
  - HEADACHE [None]
  - PARAESTHESIA ORAL [None]
  - PRURITUS [None]
  - RASH [None]
  - SKIN DISORDER [None]
  - SKIN EXFOLIATION [None]
  - SWELLING [None]
